FAERS Safety Report 8555975-6 (Version None)
Quarter: 2012Q3

REPORT INFORMATION
  Report Type: 
  Country: None (occurrence: None)
  Receive Date: 20120801
  Receipt Date: 20100903
  Transmission Date: 20120928
  Serious: Yes (Hospitalization, Other)
  Sender: FDA-Public Use
  Company Number: US-BAYER-201026915NA

PATIENT
  Age: 22 Year
  Sex: Female
  Weight: 74.83 kg

DRUGS (5)
  1. TOPAMAX [Concomitant]
     Indication: MIGRAINE
     Dosage: UNK
     Dates: start: 20070101, end: 20080101
  2. PERMETHRIN [Concomitant]
  3. IBUPROFEN [Concomitant]
     Indication: PRODUCT USED FOR UNKNOWN INDICATION
     Route: 065
     Dates: start: 20070201
  4. DROSPIRENONE AND ETHINYL ESTRADIOL [Suspect]
     Indication: ORAL CONTRACEPTION
     Route: 065
     Dates: start: 20080801, end: 20090401
  5. YASMIN [Suspect]
     Indication: ORAL CONTRACEPTION
     Route: 048
     Dates: start: 20040401, end: 20080701

REACTIONS (2)
  - BILIARY DYSKINESIA [None]
  - CHOLECYSTITIS CHRONIC [None]
